FAERS Safety Report 10745416 (Version 1)
Quarter: 2015Q1

REPORT INFORMATION
  Report Type: Spontaneous
  Country: US (occurrence: None)
  Receive Date: 20150127
  Receipt Date: 20150127
  Transmission Date: 20150721
  Serious: Yes (Other)
  Sender: FDA-Public Use
  Company Number: None

PATIENT
  Age: 72 Year
  Sex: Female
  Weight: 88.45 kg

DRUGS (8)
  1. JULIAN WHITAKER^S FWD PILLS GOLD MULTIVITAMIN [Concomitant]
  2. HYDROCODONE BITARTRATE AND ACETAMINOPHEN [Suspect]
     Active Substance: ACETAMINOPHEN\HYDROCODONE BITARTRATE
     Indication: PROCEDURAL PAIN
     Dosage: 1 PILL EVERY 4-6 HR. PRN BY MOUTH
     Route: 048
     Dates: start: 20150110, end: 20150112
  3. COUNTRY LIFE CRANBERRY COMPLETE [Concomitant]
  4. CYMBALTA [Concomitant]
     Active Substance: DULOXETINE HYDROCHLORIDE
  5. NEXIUM [Concomitant]
     Active Substance: ESOMEPRAZOLE MAGNESIUM
  6. TEKTURNA [Concomitant]
     Active Substance: ALISKIREN HEMIFUMARATE
  7. D3 [Concomitant]
     Active Substance: 25-HYDROXYCHOLECALCIFEROL, 5-TRANS-
  8. GABAPENTIN. [Concomitant]
     Active Substance: GABAPENTIN

REACTIONS (6)
  - Crying [None]
  - Product substitution issue [None]
  - Drug ineffective [None]
  - Agitation [None]
  - Mental impairment [None]
  - Unevaluable event [None]

NARRATIVE: CASE EVENT DATE: 20150112
